FAERS Safety Report 6433419-8 (Version None)
Quarter: 2009Q4

REPORT INFORMATION
  Report Type: 
  Country: None (occurrence: None)
  Receive Date: 20091106
  Receipt Date: 20091106
  Transmission Date: 20100525
  Serious: Yes (Life-Threatening)
  Sender: FDA-Public Use
  Company Number: None

PATIENT
  Age: 64 Year
  Sex: Male
  Weight: 86.1834 kg

DRUGS (1)
  1. PRAVASTATIN [Suspect]
     Indication: BLOOD CHOLESTEROL INCREASED
     Dosage: 1 TABLET EVERY DAY PO
     Route: 048
     Dates: start: 20091005, end: 20091016

REACTIONS (7)
  - BALANCE DISORDER [None]
  - DIZZINESS [None]
  - DRY THROAT [None]
  - EYE SWELLING [None]
  - HYPERTENSION [None]
  - NAUSEA [None]
  - VOMITING [None]
